FAERS Safety Report 7397174-X (Version None)
Quarter: 2011Q2

REPORT INFORMATION
  Report Type: 
  Country: None (occurrence: None)
  Receive Date: 20110406
  Receipt Date: 20110321
  Transmission Date: 20111010
  Serious: Yes (Other)
  Sender: FDA-Public Use
  Company Number: B0710965A

PATIENT
  Sex: Male

DRUGS (5)
  1. TAMIFLU [Concomitant]
     Dosage: 150MG PER DAY
     Dates: start: 20110311, end: 20110312
  2. ASPIRIN [Concomitant]
     Dosage: 100MG PER DAY
  3. MADOPAR [Concomitant]
     Dosage: 600MG PER DAY
  4. ZANAMIVIR [Suspect]
     Route: 042
     Dates: start: 20110312
  5. NEXIUM [Concomitant]
     Dosage: 20MG PER DAY
     Dates: start: 20110312

REACTIONS (2)
  - LEUKOPENIA [None]
  - NEUTROPENIA [None]
